FAERS Safety Report 5691079-8 (Version None)
Quarter: 2008Q2

REPORT INFORMATION
  Report Type: 
  Country: None (occurrence: None)
  Receive Date: 20080401
  Receipt Date: 20080325
  Transmission Date: 20081010
  Serious: Yes (Other)
  Sender: FDA-Public Use
  Company Number: US-PFIZER INC-2008027186

PATIENT
  Sex: Male

DRUGS (2)
  1. VIAGRA [Suspect]
  2. CAVERJECT [Suspect]
     Dates: start: 20040101

REACTIONS (2)
  - DRUG INEFFECTIVE [None]
  - PROSTATIC OPERATION [None]
